FAERS Safety Report 23560775 (Version 2)
Quarter: 2024Q1

REPORT INFORMATION
  Report Type: Spontaneous
  Country: US (occurrence: US)
  Receive Date: 20240223
  Receipt Date: 20240321
  Transmission Date: 20240409
  Serious: Yes (Other)
  Sender: FDA-Public Use
  Company Number: US-BEH-2024168677

PATIENT
  Age: 18 Year
  Sex: Male

DRUGS (3)
  1. PRIVIGEN [Suspect]
     Active Substance: HUMAN IMMUNOGLOBULIN G
     Indication: Stiff person syndrome
     Dosage: 70 GRAM, DAILY FOR 1 DAY QOW(EVERY 2 WEEKS)
     Route: 042
     Dates: start: 202401
  2. PRIVIGEN [Suspect]
     Active Substance: HUMAN IMMUNOGLOBULIN G
     Indication: Hereditary angioedema
  3. TAKHZYRO [Concomitant]
     Active Substance: LANADELUMAB-FLYO
     Route: 065

REACTIONS (7)
  - Swelling [Unknown]
  - Peripheral swelling [Unknown]
  - Swelling face [Unknown]
  - Hereditary angioedema [Recovered/Resolved]
  - No adverse event [Unknown]
  - Off label use [Unknown]
  - Hereditary angioedema [Unknown]

NARRATIVE: CASE EVENT DATE: 20240219
